FAERS Safety Report 8151662-7 (Version None)
Quarter: 2012Q1

REPORT INFORMATION
  Report Type: 
  Country: None (occurrence: None)
  Receive Date: 20120220
  Receipt Date: 20120216
  Transmission Date: 20120608
  Serious: Yes (Death)
  Sender: FDA-Public Use
  Company Number: US-VERTEX PHARMACEUTICALS INC.-AE-2012-002303

PATIENT
  Age: 59 Year
  Sex: Female

DRUGS (6)
  1. RIBAVIRIN [Concomitant]
     Indication: HEPATITIS C
     Dates: start: 20120213
  2. XANAX [Concomitant]
  3. PERCOCET [Concomitant]
  4. INCIVEK [Suspect]
     Indication: HEPATITIS C
     Dates: start: 20120213
  5. PEGASYS [Concomitant]
     Indication: HEPATITIS C
     Dates: start: 20120213
  6. LEXAPRO [Concomitant]

REACTIONS (1)
  - DEATH [None]
